FAERS Safety Report 5840234-2 (Version None)
Quarter: 2008Q3

REPORT INFORMATION
  Report Type: 
  Country: None (occurrence: None)
  Receive Date: 20080807
  Receipt Date: 20080807
  Transmission Date: 20090109
  Serious: No
  Sender: FDA-Public Use
  Company Number: None

PATIENT
  Sex: Female
  Weight: 73.27 kg

DRUGS (2)
  1. CYCLOPHOSPHAMIDE [Suspect]
     Dosage: 1122 MG
  2. DOXORUBICIN HYDROCHLORIDE [Suspect]
     Dosage: 112 MG

REACTIONS (3)
  - BURNING SENSATION [None]
  - HYPERKERATOSIS [None]
  - PAIN [None]
